FAERS Safety Report 24104575 (Version 1)
Quarter: 2024Q3

REPORT INFORMATION
  Report Type: Spontaneous
  Country: CA (occurrence: CA)
  Receive Date: 20240717
  Receipt Date: 20240717
  Transmission Date: 20241017
  Serious: Yes (Other)
  Sender: PFIZER
  Company Number: CA-PFIZER INC-202201402672

PATIENT
  Age: 71 Year
  Sex: Male

DRUGS (8)
  1. VYNDAMAX [Suspect]
     Active Substance: TAFAMIDIS
     Indication: Cardiomyopathy
     Dosage: 61 MG, 1X/DAY
     Route: 048
     Dates: start: 2022
  2. COUMADIN [Concomitant]
     Active Substance: WARFARIN SODIUM
     Dosage: UNK
  3. FUROSEMIDE [Concomitant]
     Active Substance: FUROSEMIDE
     Dosage: UNK (40 MG AM/ 20 MG PM QD)
  4. METOPROLOL [Concomitant]
     Active Substance: METOPROLOL
     Dosage: 25 MG, 2X/DAY
  5. OZEMPIC [Concomitant]
     Active Substance: SEMAGLUTIDE
     Dosage: UNK
  6. SACUBITRIL\VALSARTAN [Concomitant]
     Active Substance: SACUBITRIL\VALSARTAN
     Dosage: UNK, UNK, (24 MG/26 MG) 2X/DAY
  7. SPIRONOLACTONE [Concomitant]
     Active Substance: SPIRONOLACTONE
     Dosage: 12.5 MG, DAILY
  8. VYNDAQEL [Concomitant]
     Active Substance: TAFAMIDIS MEGLUMINE
     Indication: Cardiomyopathy
     Dosage: 80 MG, 1X/DAY (4 X 20MG ONCE A DAY   )
     Route: 048
     Dates: start: 20220226, end: 2022

REACTIONS (1)
  - Cardiac pacemaker insertion [Unknown]
